FAERS Safety Report 16206987 (Version 1)
Quarter: 2019Q2

REPORT INFORMATION
  Report Type: Spontaneous
  Country: IT (occurrence: IT)
  Receive Date: 20190417
  Receipt Date: 20190417
  Transmission Date: 20190711
  Serious: Yes (Other)
  Sender: FDA-Public Use
  Company Number: IT-SA-2019SA105836

PATIENT
  Age: 76 Year
  Sex: Male

DRUGS (3)
  1. ZARIVIZ [Suspect]
     Active Substance: CEFOTAXIME SODIUM
     Indication: PNEUMONITIS
     Route: 030
     Dates: start: 20190105
  2. KARVEZIDE [Concomitant]
     Active Substance: HYDROCHLOROTHIAZIDE\IRBESARTAN
  3. BETAMETHASONE SODIUM PHOSPHATE [Suspect]
     Active Substance: BETAMETHASONE SODIUM PHOSPHATE
     Indication: PNEUMONITIS
     Route: 030
     Dates: start: 20190105, end: 20190108

REACTIONS (1)
  - Blood pressure increased [Recovering/Resolving]

NARRATIVE: CASE EVENT DATE: 20190108
